FAERS Safety Report 8955197 (Version 2)
Quarter: 2013Q1

REPORT INFORMATION
  Report Type: Spontaneous
  Country: US (occurrence: US)
  Receive Date: 20121207
  Receipt Date: 20130114
  Transmission Date: 20140127
  Serious: Yes (Hospitalization)
  Sender: FDA-Public Use
  Company Number: US-US-EMD SERONO, INC.-7177302

PATIENT
  Sex: Female

DRUGS (1)
  1. REBIF [Suspect]
     Indication: MULTIPLE SCLEROSIS
     Route: 058
     Dates: start: 20100729

REACTIONS (4)
  - Multiple sclerosis relapse [Recovered/Resolved]
  - Injection site erosion [Recovered/Resolved]
  - Injection site discolouration [Recovered/Resolved]
  - Injection site pain [Recovered/Resolved]
